FAERS Safety Report 8398942-8 (Version None)
Quarter: 2012Q2

REPORT INFORMATION
  Report Type: 
  Country: None (occurrence: None)
  Receive Date: 20120531
  Receipt Date: 20120522
  Transmission Date: 20120825
  Serious: Yes (Hospitalization, Disabling, Other)
  Sender: FDA-Public Use
  Company Number: US-ASTRAZENECA-2010SE42802

PATIENT
  Age: 70 Year
  Sex: Female

DRUGS (1)
  1. ACCOLATE [Suspect]
     Route: 048

REACTIONS (7)
  - URINARY TRACT INFECTION [None]
  - ABASIA [None]
  - OSTEOARTHRITIS [None]
  - BALANCE DISORDER [None]
  - FALL [None]
  - LOWER LIMB FRACTURE [None]
  - JOINT INJURY [None]
